FAERS Safety Report 16673384 (Version 2)
Quarter: 2019Q4

REPORT INFORMATION
  Report Type: Spontaneous
  Country: US (occurrence: US)
  Receive Date: 20190806
  Receipt Date: 20191002
  Transmission Date: 20200122
  Serious: No
  Sender: FDA-Public Use
  Company Number: US-PFIZER INC-2019334655

PATIENT
  Age: 75 Year
  Sex: Female

DRUGS (2)
  1. IBRANCE [Suspect]
     Active Substance: PALBOCICLIB
     Indication: BREAST CANCER FEMALE
     Dosage: 100 MG, UNK
     Dates: start: 20171010
  2. FASLODEX [Concomitant]
     Active Substance: FULVESTRANT
     Dosage: 10 ML, UNK (50MG/ML-10 MILLILITER EVERY 30 DAYS IN MUSCLE MAY LONGER)
     Route: 030
     Dates: start: 20171010

REACTIONS (1)
  - White blood cell count decreased [Unknown]
